FAERS Safety Report 4546530-3 (Version None)
Quarter: 2005Q1

REPORT INFORMATION
  Report Type: 
  Country: None (occurrence: None)
  Receive Date: 20050106
  Receipt Date: 20041228
  Transmission Date: 20050727
  Serious: Yes (Hospitalization)
  Sender: FDA-Public Use
  Company Number: PO0400396-1

PATIENT
  Age: 39 Year

DRUGS (4)
  1. NABUCOX [Suspect]
     Indication: BACK PAIN
     Dosage: 1G PER DAY
     Route: 048
     Dates: start: 20041024, end: 20041102
  2. PARACETAMOL + TRAMADOL [Concomitant]
     Indication: BACK PAIN
     Dates: start: 20041024
  3. LESCOL [Concomitant]
  4. BIOTINE [Concomitant]

REACTIONS (7)
  - ANAEMIA [None]
  - ASTHENIA [None]
  - DUODENAL ULCER [None]
  - HELICOBACTER PYLORI IDENTIFICATION TEST POSITIVE [None]
  - MELAENA [None]
  - MUSCULAR WEAKNESS [None]
  - PALLOR [None]
